FAERS Safety Report 21023087 (Version 1)
Quarter: 2022Q2

REPORT INFORMATION
  Report Type: Spontaneous
  Country: US (occurrence: None)
  Receive Date: 20220629
  Receipt Date: 20220629
  Transmission Date: 20220721
  Serious: Yes (Hospitalization)
  Sender: FDA-Public Use
  Company Number: None

PATIENT
  Age: 72 Year
  Sex: Male
  Weight: 102 kg

DRUGS (1)
  1. APIXABAN [Suspect]
     Active Substance: APIXABAN
     Indication: Atrial fibrillation
     Dosage: 5 MG BID PO?
     Route: 048
     Dates: start: 20200914

REACTIONS (5)
  - Gastrointestinal haemorrhage [None]
  - Therapy interrupted [None]
  - Haemoglobin decreased [None]
  - Gastritis [None]
  - Haemorrhage [None]

NARRATIVE: CASE EVENT DATE: 20220620
